FAERS Safety Report 23261263 (Version 1)
Quarter: 2023Q4

REPORT INFORMATION
  Report Type: Spontaneous
  Country: US (occurrence: US)
  Receive Date: 20231205
  Receipt Date: 20231205
  Transmission Date: 20240109
  Serious: Yes (Other)
  Sender: FDA-Public Use
  Company Number: US-CELLTRION INC.-2023US018862

PATIENT

DRUGS (2)
  1. RITUXIMAB [Suspect]
     Active Substance: RITUXIMAB
     Indication: Hairy cell leukaemia
     Dosage: UNK
     Dates: start: 202008, end: 202102
  2. MOXETUMOMAB PASUDOTOX [Suspect]
     Active Substance: MOXETUMOMAB PASUDOTOX
     Indication: Hairy cell leukaemia
     Dosage: UNK
     Dates: start: 202008, end: 202102

REACTIONS (3)
  - COVID-19 [Recovered/Resolved]
  - COVID-19 pneumonia [Recovered/Resolved]
  - Drug effective for unapproved indication [Unknown]

NARRATIVE: CASE EVENT DATE: 20211101
